FAERS Safety Report 10046424 (Version 1)
Quarter: 2014Q1

REPORT INFORMATION
  Report Type: Spontaneous
  Country: US (occurrence: US)
  Receive Date: 20140331
  Receipt Date: 20140331
  Transmission Date: 20141002
  Serious: No
  Sender: FDA-Public Use
  Company Number: US-SHIRE-US201400884

PATIENT
  Sex: Female
  Weight: 54.42 kg

DRUGS (5)
  1. VYVANSE [Suspect]
     Indication: ATTENTION DEFICIT/HYPERACTIVITY DISORDER
     Dosage: 70 MG, UNKNOWN
     Route: 048
  2. VYVANSE [Suspect]
     Dosage: UNK UNK (VARIOUS STRENGTHS), UNKNOWN
     Route: 048
  3. INTUNIV [Concomitant]
     Indication: ATTENTION DEFICIT/HYPERACTIVITY DISORDER
     Dosage: 1 MG, UNKNOWN
     Route: 048
  4. INTUNIV [Concomitant]
     Dosage: 2 MG, UNKNOWN
     Route: 048
  5. WELLBUTRIN [Concomitant]
     Indication: DEPRESSION
     Dosage: 300 MG, 1X/DAY:QD
     Route: 048
     Dates: start: 2013

REACTIONS (1)
  - Drug ineffective [Recovered/Resolved]
